FAERS Safety Report 11008999 (Version 1)
Quarter: 2015Q2

REPORT INFORMATION
  Report Type: Spontaneous
  Country: ES (occurrence: ES)
  Receive Date: 20150410
  Receipt Date: 20150410
  Transmission Date: 20150821
  Serious: Yes (Other)
  Sender: FDA-Public Use
  Company Number: ES-CELGENE-ESP-2015036323

PATIENT

DRUGS (1)
  1. REVLIMID [Suspect]
     Active Substance: LENALIDOMIDE
     Indication: PLASMA CELL MYELOMA
     Route: 048

REACTIONS (7)
  - Organising pneumonia [Unknown]
  - Pneumonitis [Unknown]
  - Interstitial lung disease [Unknown]
  - Alveolitis allergic [Unknown]
  - Granuloma [Unknown]
  - Alveolitis [Unknown]
  - Bronchiolitis [Unknown]
